FAERS Safety Report 25800917 (Version 1)
Quarter: 2025Q3

REPORT INFORMATION
  Report Type: Spontaneous
  Country: JP (occurrence: JP)
  Receive Date: 20250915
  Receipt Date: 20250915
  Transmission Date: 20251020
  Serious: Yes (Other)
  Sender: BEIGENE
  Company Number: JP-BEIGENE-BGN-2025-015650

PATIENT
  Age: 8 Decade

DRUGS (4)
  1. TEVIMBRA [Suspect]
     Active Substance: TISLELIZUMAB-JSGR
     Indication: Oesophageal carcinoma
  2. TEVIMBRA [Suspect]
     Active Substance: TISLELIZUMAB-JSGR
  3. TEVIMBRA [Suspect]
     Active Substance: TISLELIZUMAB-JSGR
  4. TEVIMBRA [Suspect]
     Active Substance: TISLELIZUMAB-JSGR

REACTIONS (1)
  - Disease progression [Unknown]
